FAERS Safety Report 23836250 (Version 1)
Quarter: 2024Q2

REPORT INFORMATION
  Report Type: Spontaneous
  Country: US (occurrence: US)
  Receive Date: 20240509
  Receipt Date: 20240509
  Transmission Date: 20240716
  Serious: Yes (Other)
  Sender: FDA-Public Use
  Company Number: US-AMGEN-USASP2024087875

PATIENT

DRUGS (1)
  1. VECTIBIX [Suspect]
     Active Substance: PANITUMUMAB
     Indication: Anal cancer metastatic
     Dosage: UNK, 3 INFUSIONS
     Route: 065

REACTIONS (2)
  - Metastases to liver [Unknown]
  - Drug ineffective [Unknown]
